FAERS Safety Report 7958624 (Version 5)
Quarter: 2013Q2

REPORT INFORMATION
  Report Type: Spontaneous
  Country: US (occurrence: US)
  Receive Date: 20110524
  Receipt Date: 20130524
  Transmission Date: 20140414
  Serious: Yes (Death, Hospitalization, Congenital Anomaly, Other)
  Sender: FDA-Public Use
  Company Number: US-PFIZER INC-2011105842

PATIENT
  Sex: Male
  Weight: 4.5 kg

DRUGS (11)
  1. EFFEXOR XR [Suspect]
     Indication: DEPRESSION
     Dosage: 150 MG
     Route: 064
     Dates: start: 2008
  2. EFFEXOR XR [Suspect]
     Dosage: 150 MG, 1X/DAY
     Route: 064
     Dates: start: 20080422
  3. EFFEXOR [Suspect]
     Dosage: UNK
     Route: 064
  4. VENLAFAXINE HCL [Suspect]
     Dosage: UNK
     Route: 064
  5. TYLENOL [Concomitant]
     Indication: PAIN
     Dosage: 650 MG, EVERY FOUR HOURS WHEN NEEDED
     Route: 064
  6. PRENATAL VITAMINS [Concomitant]
     Dosage: ONE TABLET, ONCE DAILY
     Route: 064
     Dates: start: 20090322, end: 20090328
  7. AMBIEN [Concomitant]
     Indication: SLEEP DISORDER
     Dosage: 5 MG, WHEN NEEDED AT BEDTIME
     Route: 064
     Dates: start: 20090319, end: 20090325
  8. COLACE [Concomitant]
     Indication: CONSTIPATION
     Dosage: 100 MG, 2X/DAY
     Route: 064
     Dates: start: 20090320, end: 20090321
  9. MAGNESIUM [Concomitant]
     Indication: CONSTIPATION
     Dosage: 10 ML, EVERY 6 HOURS WHEN NEEDED
     Route: 064
     Dates: start: 20090321, end: 20090325
  10. POLYETHYLENE GLYCOL [Concomitant]
     Dosage: 17 G, EVERY DAY FOR ONE WEEK
     Route: 064
     Dates: start: 20090321, end: 20090324
  11. KETOROLAC TROMETHAMINE [Concomitant]
     Dosage: UNK,
     Route: 064

REACTIONS (15)
  - Foetal exposure during pregnancy [Fatal]
  - Pulmonary artery atresia [Fatal]
  - Tricuspid valve disease [Fatal]
  - Pulmonary artery stenosis [Unknown]
  - Tricuspid valve incompetence [Unknown]
  - Pericardial effusion [Unknown]
  - Right ventricular hypertrophy [Unknown]
  - Hypoglycaemia [Unknown]
  - Cardiomegaly [Unknown]
  - Dilatation atrial [Unknown]
  - Tachypnoea [Unknown]
  - Respiratory failure [Unknown]
  - Neonatal tachycardia [Unknown]
  - Macrosomia [Unknown]
  - Contusion [Unknown]
